FAERS Safety Report 9778623 (Version 1)
Quarter: 2013Q4

REPORT INFORMATION
  Report Type: Spontaneous
  Country: US (occurrence: None)
  Receive Date: 20131219
  Receipt Date: 20131219
  Transmission Date: 20140711
  Serious: Yes (Other)
  Sender: FDA-Public Use
  Company Number: JPI-P-032342

PATIENT
  Age: 31 Year
  Sex: Female
  Weight: 77.3 kg

DRUGS (6)
  1. XYREM (SODIUM OXYBATE) ORAL SOLUTION, 500MG/ML [Suspect]
     Indication: NARCOLEPSY
     Route: 048
     Dates: start: 20110808
  2. XYREM (SODIUM OXYBATE) ORAL SOLUTION, 500MG/ML [Suspect]
     Indication: CATAPLEXY
     Route: 048
     Dates: start: 20110808
  3. XYREM (SODIUM OXYBATE) ORAL SOLUTION, 500MG/ML [Suspect]
     Route: 048
     Dates: start: 20110808
  4. HYDROXYZINE (HYDROXYZINE) [Suspect]
     Indication: ANXIETY
     Dates: start: 2013, end: 2013
  5. ZYBAN (BUPROPION HYDROCHLORIDE) [Suspect]
  6. ADDERALL (AMFETAMINE ASPARTATE, AMFETAMINE SULFATE, DEXAMFETAMINE SACCHARATE, DEXAMFETAMINE SULFATE) [Concomitant]

REACTIONS (19)
  - Alcohol abuse [None]
  - Drug abuser [None]
  - Legal problem [None]
  - Craniocerebral injury [None]
  - Fall [None]
  - Feeling abnormal [None]
  - Malaise [None]
  - Malaise [None]
  - Panic attack [None]
  - Syncope [None]
  - Heart rate decreased [None]
  - Blood pressure decreased [None]
  - Headache [None]
  - Vomiting [None]
  - Nausea [None]
  - Weight decreased [None]
  - Anxiety [None]
  - Face injury [None]
  - Movement disorder [None]
